FAERS Safety Report 23798945 (Version 2)
Quarter: 2024Q2

REPORT INFORMATION
  Report Type: Spontaneous
  Country: US (occurrence: US)
  Receive Date: 20240430
  Receipt Date: 20240524
  Transmission Date: 20240716
  Serious: Yes (Other)
  Sender: FDA-Public Use
  Company Number: US-MLMSERVICE-20240418-4926515-1

PATIENT
  Sex: Female

DRUGS (4)
  1. ELOCON [Suspect]
     Active Substance: MOMETASONE FUROATE
     Indication: Dermatitis contact
     Dosage: TOPICAL MEDIUM-POTENCY CORTICOSTEROID
     Route: 061
     Dates: start: 2022
  2. PREDNISONE [Suspect]
     Active Substance: PREDNISONE
     Indication: Dermatitis contact
     Dosage: TAPER PACK
     Route: 065
     Dates: start: 2022
  3. ECONAZOLE [Concomitant]
     Active Substance: ECONAZOLE
     Indication: Antifungal treatment
     Dosage: UNK
     Route: 061
     Dates: start: 2022
  4. DIPHENHYDRAMINE [Concomitant]
     Active Substance: DIPHENHYDRAMINE
     Dosage: UNK
     Dates: start: 2022

REACTIONS (4)
  - Dermatophytosis [Recovered/Resolved]
  - Condition aggravated [Recovered/Resolved]
  - Trichophytosis [Recovered/Resolved]
  - Drug ineffective [Unknown]

NARRATIVE: CASE EVENT DATE: 20230101
